FAERS Safety Report 15623264 (Version 1)
Quarter: 2018Q4

REPORT INFORMATION
  Report Type: Spontaneous
  Country: AU (occurrence: AU)
  Receive Date: 20181115
  Receipt Date: 20181115
  Transmission Date: 20190205
  Serious: Yes (Other)
  Sender: FDA-Public Use
  Company Number: AU-EISAI MEDICAL RESEARCH-EC-2018-047171

PATIENT
  Age: 57 Year
  Sex: Female

DRUGS (4)
  1. LENVIMA [Suspect]
     Active Substance: LENVATINIB
     Route: 048
     Dates: start: 201803, end: 201803
  2. LENVIMA [Suspect]
     Active Substance: LENVATINIB
     Route: 048
     Dates: start: 201803, end: 2018
  3. LENVIMA [Suspect]
     Active Substance: LENVATINIB
     Route: 048
     Dates: start: 2018, end: 2018
  4. LENVIMA [Suspect]
     Active Substance: LENVATINIB
     Indication: THYROID CANCER
     Route: 048
     Dates: start: 201801, end: 201803

REACTIONS (12)
  - Rash [Unknown]
  - Diarrhoea [Unknown]
  - Palmar-plantar erythrodysaesthesia syndrome [Unknown]
  - Weight decreased [Unknown]
  - Vomiting [Unknown]
  - Cough [Unknown]
  - Nausea [Unknown]
  - Dysphonia [Unknown]
  - Dyspnoea [Unknown]
  - Pulmonary haemorrhage [Unknown]
  - Laryngeal oedema [Unknown]
  - Microalbuminuria [Unknown]

NARRATIVE: CASE EVENT DATE: 2018
